FAERS Safety Report 23898110 (Version 1)
Quarter: 2024Q2

REPORT INFORMATION
  Report Type: Spontaneous
  Country: US (occurrence: US)
  Receive Date: 20240524
  Receipt Date: 20240524
  Transmission Date: 20240716
  Serious: No
  Sender: FDA-Public Use
  Company Number: US-SANOFI-02058778

PATIENT

DRUGS (2)
  1. THYROGEN [Suspect]
     Active Substance: THYROTROPIN ALFA
     Dosage: UNK
     Dates: start: 20240415, end: 20240415
  2. THYROGEN [Suspect]
     Active Substance: THYROTROPIN ALFA
     Dosage: UNK
     Dates: start: 20240416, end: 20240416

REACTIONS (1)
  - Drug ineffective [Unknown]
